FAERS Safety Report 7570849-5 (Version None)
Quarter: 2011Q2

REPORT INFORMATION
  Report Type: 
  Country: None (occurrence: None)
  Receive Date: 20110624
  Receipt Date: 20110620
  Transmission Date: 20111010
  Serious: Yes (Death, Hospitalization, Other)
  Sender: FDA-Public Use
  Company Number: CN-SANOFI-AVENTIS-2011SA004433

PATIENT
  Sex: Male

DRUGS (7)
  1. SUNITINIB MALATE [Suspect]
     Indication: RENAL CELL CARCINOMA
     Route: 048
     Dates: start: 20100417, end: 20100917
  2. SUNITINIB MALATE [Suspect]
     Route: 048
     Dates: start: 20091030, end: 20100220
  3. FELODIPINE [Concomitant]
  4. SUNITINIB MALATE [Suspect]
     Route: 048
     Dates: start: 20101002, end: 20101210
  5. CALCITRIOL [Concomitant]
  6. FUROSEMIDE [Suspect]
     Route: 065
     Dates: start: 20101217, end: 20101217
  7. HERBAL PREPARATION [Concomitant]

REACTIONS (3)
  - PROTEINURIA [None]
  - RENAL FAILURE [None]
  - BLOOD CREATININE INCREASED [None]
